FAERS Safety Report 9193974 (Version 2)
Quarter: 2013Q2

REPORT INFORMATION
  Report Type: Report from Study
  Country: US (occurrence: US)
  Receive Date: 20130327
  Receipt Date: 20130528
  Transmission Date: 20140414
  Serious: Yes (Hospitalization, Other)
  Sender: FDA-Public Use
  Company Number: US-ASTRAZENECA-2013SE17853

PATIENT
  Age: 18747 Day
  Sex: Female

DRUGS (5)
  1. SYMBICORT PMDI [Suspect]
     Indication: ASTHMA
     Dosage: 160/4.5UG TWO ACTUATIONS BID
     Route: 055
     Dates: start: 20130107
  2. ALBUTEROL [Suspect]
     Indication: ASTHMA
     Route: 065
     Dates: start: 20130107
  3. SINGULAIR [Concomitant]
     Indication: ASTHMA
     Route: 048
  4. HYDROCHLOROTHIAZIDE [Concomitant]
     Indication: HYPERTENSION
     Route: 048
  5. SYMBICORT [Concomitant]
     Indication: ASTHMA
     Route: 055

REACTIONS (1)
  - Syncope [Recovered/Resolved]
